FAERS Safety Report 23100339 (Version 1)
Quarter: 2023Q4

REPORT INFORMATION
  Report Type: Spontaneous
  Country: US (occurrence: None)
  Receive Date: 20231020
  Receipt Date: 20231020
  Transmission Date: 20240109
  Serious: Yes (Hospitalization)
  Sender: FDA-Public Use
  Company Number: None

PATIENT
  Age: 64 Year
  Sex: Male
  Weight: 220 kg

DRUGS (2)
  1. INSULIN GLARGINE-YFGN [Suspect]
     Active Substance: INSULIN GLARGINE-YFGN
     Dosage: STRENGTH: 100UNIT/ML
     Dates: start: 20220209, end: 20230126
  2. GLIMEPIRIDE [Suspect]
     Active Substance: GLIMEPIRIDE
     Dates: start: 20211110, end: 20230126

REACTIONS (4)
  - Hot flush [None]
  - Dizziness [None]
  - Headache [None]
  - Therapy cessation [None]

NARRATIVE: CASE EVENT DATE: 20230126
